FAERS Safety Report 18745529 (Version 1)
Quarter: 2021Q1

REPORT INFORMATION
  Report Type: Spontaneous
  Country: US (occurrence: US)
  Receive Date: 20210115
  Receipt Date: 20210115
  Transmission Date: 20210419
  Serious: Yes (Other)
  Sender: FDA-Public Use
  Company Number: US-STRIDES ARCOLAB LIMITED-2021SP000535

PATIENT
  Age: 37 Year
  Sex: Male

DRUGS (1)
  1. IBUPROFEN. [Suspect]
     Active Substance: IBUPROFEN
     Indication: HEADACHE
     Dosage: UNK, QD
     Route: 065

REACTIONS (5)
  - Hypertension [Recovered/Resolved]
  - Glomerulonephritis membranous [Recovered/Resolved]
  - Kidney fibrosis [Recovered/Resolved]
  - Focal segmental glomerulosclerosis [Recovered/Resolved]
  - Renal tubular atrophy [Recovered/Resolved]
